FAERS Safety Report 5502155-4 (Version None)
Quarter: 2007Q4

REPORT INFORMATION
  Report Type: 
  Country: None (occurrence: None)
  Receive Date: 20071030
  Receipt Date: 20071019
  Transmission Date: 20080405
  Serious: Yes (Death, Life-Threatening, Hospitalization)
  Sender: FDA-Public Use
  Company Number: JP-JNJFOC-20071004079

PATIENT
  Sex: Female

DRUGS (18)
  1. CRAVIT [Suspect]
     Indication: DRUG USE FOR UNKNOWN INDICATION
     Route: 048
  2. OLMETEC [Suspect]
     Indication: HYPERTENSION
     Route: 048
  3. LANSOPRAZOLE [Suspect]
     Indication: GASTRIC ULCER
     Route: 041
  4. LANSOPRAZOLE [Suspect]
     Route: 048
  5. APRESOLINE [Suspect]
     Indication: HYPERTENSION
     Route: 048
  6. OMEGACIN [Suspect]
     Indication: INTERSTITIAL LUNG DISEASE
     Route: 041
  7. DORMICUM [Suspect]
     Indication: SEDATION
     Route: 042
  8. PENTAZOCINE LACTATE [Suspect]
     Indication: SEDATION
     Route: 042
  9. VOLTAREN [Suspect]
     Indication: HYPERTHERMIA
     Route: 054
  10. PRODIF [Suspect]
     Indication: INTERSTITIAL LUNG DISEASE
     Route: 042
  11. BAKTAR [Suspect]
     Indication: INTERSTITIAL LUNG DISEASE
     Route: 048
  12. NORVASC [Suspect]
     Indication: HYPERTENSION
     Route: 048
  13. RHEUMATREX [Concomitant]
     Indication: MUSCULOSKELETAL PAIN
     Route: 065
  14. RIMATIL [Concomitant]
     Indication: MUSCULOSKELETAL PAIN
     Route: 065
  15. SOLU-MEDROL [Concomitant]
     Route: 065
  16. ELASPOL [Concomitant]
     Route: 065
  17. PREDONINE [Concomitant]
     Indication: INTERSTITIAL LUNG DISEASE
     Route: 065
  18. PREDONINE [Concomitant]
     Indication: MUSCULOSKELETAL PAIN
     Route: 065

REACTIONS (2)
  - GASTROINTESTINAL INFECTION [None]
  - TOXIC EPIDERMAL NECROLYSIS [None]
